FAERS Safety Report 18123981 (Version 1)
Quarter: 2020Q3

REPORT INFORMATION
  Report Type: Spontaneous
  Country: US (occurrence: US)
  Receive Date: 20200807
  Receipt Date: 20200807
  Transmission Date: 20201103
  Serious: No
  Sender: FDA-Public Use
  Company Number: US-EISAI MEDICAL RESEARCH-EC-2020-078183

PATIENT
  Age: 57 Year
  Sex: Female

DRUGS (6)
  1. TAXOTERE [Suspect]
     Active Substance: DOCETAXEL
     Indication: TRIPLE NEGATIVE BREAST CANCER
     Dosage: DOSE AND FREQUENCY UNKNOWN
     Route: 065
     Dates: end: 2020
  2. DOXORUBICIN [Suspect]
     Active Substance: DOXORUBICIN
     Indication: TRIPLE NEGATIVE BREAST CANCER
     Dosage: DOSE AND FREQUENCY UNKNOWN
     Route: 065
     Dates: end: 2020
  3. GEMZAR [Suspect]
     Active Substance: GEMCITABINE HYDROCHLORIDE
     Indication: TRIPLE NEGATIVE BREAST CANCER
     Dosage: DOSE AND FREQUENCY UNKNOWN
     Route: 065
     Dates: end: 2020
  4. HALAVEN [Suspect]
     Active Substance: ERIBULIN MESYLATE
     Indication: TRIPLE NEGATIVE BREAST CANCER
     Dosage: DOSE UNKNOWN
     Route: 042
     Dates: end: 20200618
  5. TECENTRIQ [Suspect]
     Active Substance: ATEZOLIZUMAB
     Indication: TRIPLE NEGATIVE BREAST CANCER
     Dosage: DOSE AND FREQUENCY UNKNOWN
     Route: 065
     Dates: end: 2020
  6. ABRAXANE [Suspect]
     Active Substance: PACLITAXEL
     Indication: TRIPLE NEGATIVE BREAST CANCER
     Dosage: DOSE AND FREQUENCY UNKNOWN
     Route: 065
     Dates: end: 2020

REACTIONS (1)
  - Malignant neoplasm progression [Not Recovered/Not Resolved]
